FAERS Safety Report 21440267 (Version 1)
Quarter: 2022Q4

REPORT INFORMATION
  Report Type: Report from Study
  Country: US (occurrence: US)
  Receive Date: 20221011
  Receipt Date: 20221011
  Transmission Date: 20230113
  Serious: Yes (Other)
  Sender: FDA-Public Use
  Company Number: US-AMNEAL PHARMACEUTICALS-2021-AMRX-05350

PATIENT
  Age: 11 Year
  Sex: Female
  Weight: 38.095 kg

DRUGS (3)
  1. LIORESAL [Suspect]
     Active Substance: BACLOFEN
     Indication: Muscle spasticity
     Dosage: 50 ?G, \DAY
     Route: 037
     Dates: end: 20070509
  2. LIORESAL [Suspect]
     Active Substance: BACLOFEN
     Dosage: 50 ?G, \DAY
     Route: 037
     Dates: start: 20071221
  3. LIORESAL [Suspect]
     Active Substance: BACLOFEN
     Dosage: 149.83 ?G, \DAY AT EOS 3/25/14
     Route: 037

REACTIONS (1)
  - Implant site infection [Recovered/Resolved]

NARRATIVE: CASE EVENT DATE: 20070904
